FAERS Safety Report 8447962-3 (Version None)
Quarter: 2012Q2

REPORT INFORMATION
  Report Type: 
  Country: None (occurrence: None)
  Receive Date: 20120619
  Receipt Date: 20120613
  Transmission Date: 20120825
  Serious: Yes (Other)
  Sender: FDA-Public Use
  Company Number: PHHY2012MX051458

PATIENT
  Sex: Female

DRUGS (5)
  1. ONBREZ [Suspect]
     Dosage: 300 UG, UNK
     Dates: start: 20120301
  2. SPIRIVA [Concomitant]
     Indication: CHRONIC OBSTRUCTIVE PULMONARY DISEASE
     Dosage: 1 DF, UNK
     Dates: start: 20040601
  3. COMBIVENT [Concomitant]
     Indication: DYSPNOEA
     Dosage: 1 DF, QD
     Dates: start: 20040601
  4. BUDESONIDE [Suspect]
     Indication: CHRONIC OBSTRUCTIVE PULMONARY DISEASE
     Dosage: 2 DF, QD
     Dates: start: 20110601
  5. ONBREZ [Suspect]
     Dosage: 150 UG, DAILY
     Dates: start: 20110601

REACTIONS (2)
  - CATARACT [None]
  - DYSPHONIA [None]
